FAERS Safety Report 9434993 (Version 1)
Quarter: 2013Q3

REPORT INFORMATION
  Report Type: Report from Study
  Country: US (occurrence: US)
  Receive Date: 20130801
  Receipt Date: 20130801
  Transmission Date: 20140515
  Serious: No
  Sender: FDA-Public Use
  Company Number: PHEH2013US016134

PATIENT
  Sex: Female

DRUGS (6)
  1. TASIGNA [Suspect]
     Dosage: 300 MG, BID
     Route: 048
     Dates: start: 201112
  2. TASIGNA [Suspect]
     Dosage: 150 MG ONE CAPSULE IN AM AND 2 CAPSULES IN PM
     Route: 048
  3. TASIGNA [Suspect]
     Dosage: 150 MG, BID
     Route: 048
  4. RAMIPRIL [Concomitant]
     Dosage: 10 MG, UNK
  5. MULTIVITAMIN [Concomitant]
  6. VITAMIN D3 [Concomitant]
     Dosage: 5000 U, UNK

REACTIONS (11)
  - Fatigue [Unknown]
  - Depression [Unknown]
  - Gout [Unknown]
  - Alopecia [Unknown]
  - Fluid retention [Unknown]
  - Epigastric discomfort [Unknown]
  - Nipple disorder [Recovered/Resolved]
  - Arthropod bite [Unknown]
  - Skin irritation [Unknown]
  - Food interaction [Unknown]
  - Dysphagia [Unknown]
